FAERS Safety Report 12190970 (Version 1)
Quarter: 2016Q1

REPORT INFORMATION
  Report Type: Spontaneous
  Country: US (occurrence: US)
  Receive Date: 20160318
  Receipt Date: 20160318
  Transmission Date: 20160526
  Serious: Yes (Other)
  Sender: FDA-Public Use
  Company Number: US-TEVA-632188USA

PATIENT
  Sex: Female

DRUGS (1)
  1. DULOXETINE. [Suspect]
     Active Substance: DULOXETINE
     Route: 065
     Dates: start: 2014

REACTIONS (7)
  - Lethargy [Unknown]
  - Depression [Unknown]
  - Drug effect decreased [Unknown]
  - Hypersomnia [Unknown]
  - Activities of daily living impaired [Unknown]
  - Product substitution issue [Unknown]
  - Suicidal ideation [Unknown]
